FAERS Safety Report 23167769 (Version 1)
Quarter: 2023Q4

REPORT INFORMATION
  Report Type: Spontaneous
  Country: DE (occurrence: DE)
  Receive Date: 20231109
  Receipt Date: 20231109
  Transmission Date: 20240109
  Serious: Yes (Hospitalization)
  Sender: FDA-Public Use
  Company Number: DE-NOVOPROD-1104108

PATIENT
  Age: 29 Year
  Sex: Female
  Weight: 62 kg

DRUGS (1)
  1. NOVORAPID [Suspect]
     Active Substance: INSULIN ASPART
     Indication: Type 1 diabetes mellitus
     Dosage: 47 MG/IU
     Route: 058
     Dates: start: 20230812, end: 20230812

REACTIONS (4)
  - Diabetic ketoacidosis [Recovered/Resolved]
  - Product leakage [Unknown]
  - Product physical issue [Unknown]
  - Influenza [Unknown]

NARRATIVE: CASE EVENT DATE: 20230812
